FAERS Safety Report 6392230-7 (Version None)
Quarter: 2009Q4

REPORT INFORMATION
  Report Type: 
  Country: None (occurrence: None)
  Receive Date: 20091005
  Receipt Date: 20090925
  Transmission Date: 20100525
  Serious: Yes (Disabling)
  Sender: FDA-Public Use
  Company Number: 391630

PATIENT
  Age: 9 Year
  Sex: Male

DRUGS (6)
  1. PRECEDEX [Suspect]
     Indication: SEDATIVE THERAPY
     Dosage: 1.5 MCG/KG/HR, .4 MCG/KG/HR, 0.25-0.36 MCG/KG/HR
  2. PROPOFOL [Concomitant]
  3. REMIFENTANIL [Concomitant]
  4. FENTANYL CITRATE [Concomitant]
  5. ROPIVACAINE HYDROCHLORIDE [Concomitant]
  6. PROPOFOL [Concomitant]

REACTIONS (4)
  - CEREBRAL INFARCTION [None]
  - MONOPLEGIA [None]
  - MOYAMOYA DISEASE [None]
  - RESTLESSNESS [None]
